FAERS Safety Report 7090175-0 (Version None)
Quarter: 2010Q4

REPORT INFORMATION
  Report Type: 
  Country: None (occurrence: None)
  Receive Date: 20101104
  Receipt Date: 20101104
  Transmission Date: 20110411
  Serious: No
  Sender: FDA-Public Use
  Company Number: None

PATIENT
  Sex: Male

DRUGS (2)
  1. TUBERSOL [Suspect]
     Indication: IMMUNISATION
     Dosage: L FOREARM / ID
     Route: 023
     Dates: start: 20100216
  2. H1N1 [Suspect]
     Indication: IMMUNISATION
     Dosage: IM/L ARM
     Route: 030
     Dates: start: 20100216

REACTIONS (1)
  - HEADACHE [None]
